FAERS Safety Report 16172760 (Version 1)
Quarter: 2019Q2

REPORT INFORMATION
  Report Type: Spontaneous
  Country: US (occurrence: US)
  Receive Date: 20190409
  Receipt Date: 20190409
  Transmission Date: 20190711
  Serious: Yes (Hospitalization, Other)
  Sender: FDA-Public Use
  Company Number: US-HIKMA PHARMACEUTICALS USA INC.-US-H14001-19-02052

PATIENT
  Age: 47 Year
  Sex: Male

DRUGS (1)
  1. BUPRENORPHINE HYDROCHLORIDE + NALOXONE HYDROCHLORIDE [Suspect]
     Active Substance: BUPRENORPHINE HYDROCHLORIDE\NALOXONE HYDROCHLORIDE
     Indication: PRODUCT USED FOR UNKNOWN INDICATION
     Dosage: 2 MG/0.5 MG
     Route: 060

REACTIONS (7)
  - Dyspnoea [Unknown]
  - Hyperhidrosis [Unknown]
  - Arthralgia [Unknown]
  - Heart rate decreased [Unknown]
  - Hypertension [Unknown]
  - Feeling abnormal [Unknown]
  - Panic attack [Unknown]
